FAERS Safety Report 7385092-2 (Version None)
Quarter: 2011Q1

REPORT INFORMATION
  Report Type: 
  Country: None (occurrence: None)
  Receive Date: 20110330
  Receipt Date: 20110322
  Transmission Date: 20110831
  Serious: Yes (Death, Hospitalization)
  Sender: FDA-Public Use
  Company Number: DE-ACTELION-A-US2011-46512

PATIENT

DRUGS (2)
  1. TRACLEER [Concomitant]
     Indication: PULMONARY ARTERIAL HYPERTENSION
     Dosage: UNK
     Route: 048
     Dates: start: 20101215, end: 20110223
  2. VENTAVIS [Suspect]
     Indication: PULMONARY HYPERTENSION
     Dosage: 5 UG, Q4HRS
     Route: 055
     Dates: start: 20090225

REACTIONS (12)
  - SEPSIS [None]
  - ANXIETY [None]
  - RESTLESSNESS [None]
  - SYNCOPE [None]
  - NAUSEA [None]
  - RIGHT VENTRICULAR FAILURE [None]
  - BRADYCARDIA [None]
  - MENORRHAGIA [None]
  - ENDOMETRITIS [None]
  - HYPERVENTILATION [None]
  - RESPIRATORY TRACT INFECTION [None]
  - ABDOMINAL PAIN [None]
